FAERS Safety Report 7625769-4 (Version None)
Quarter: 2011Q3

REPORT INFORMATION
  Report Type: 
  Country: None (occurrence: None)
  Receive Date: 20110721
  Receipt Date: 20110718
  Transmission Date: 20111222
  Serious: No
  Sender: FDA-Public Use
  Company Number: US-PFIZER INC-2011162251

PATIENT
  Sex: Male
  Weight: 147.39 kg

DRUGS (2)
  1. LYRICA [Suspect]
     Dosage: UNK
     Dates: start: 20110627
  2. FENTANYL CITRATE [Suspect]
     Indication: BACK PAIN
     Dosage: 75 UG, ONE PATCH Q 72 HOURS
     Route: 062
     Dates: start: 20110627

REACTIONS (7)
  - MALAISE [None]
  - DIARRHOEA [None]
  - DRUG INEFFECTIVE [None]
  - HYPERHIDROSIS [None]
  - RESTLESSNESS [None]
  - COLD SWEAT [None]
  - INSOMNIA [None]
